FAERS Safety Report 5299474-6 (Version None)
Quarter: 2007Q2

REPORT INFORMATION
  Report Type: 
  Country: None (occurrence: None)
  Receive Date: 20070417
  Receipt Date: 20070413
  Transmission Date: 20071010
  Serious: Yes (Hospitalization)
  Sender: FDA-Public Use
  Company Number: FR-ELI_LILLY_AND_COMPANY-FR200703005552

PATIENT
  Age: 21 Year
  Sex: Male

DRUGS (2)
  1. ZYPREXA [Suspect]
     Indication: BRIEF PSYCHOTIC DISORDER WITH MARKED STRESSORS
     Dosage: UNK, UNKNOWN
     Route: 048
     Dates: start: 20070128, end: 20070214
  2. TERCIAN [Concomitant]
     Indication: BRIEF PSYCHOTIC DISORDER WITH MARKED STRESSORS
     Dosage: UNK, UNKNOWN
     Route: 048
     Dates: start: 20070129, end: 20070205

REACTIONS (5)
  - BLOOD BILIRUBIN INCREASED [None]
  - EOSINOPHILIA [None]
  - MIXED HEPATOCELLULAR-CHOLESTATIC INJURY [None]
  - PRURITUS GENERALISED [None]
  - PYREXIA [None]
